FAERS Safety Report 8189598-8 (Version None)
Quarter: 2012Q1

REPORT INFORMATION
  Report Type: 
  Country: None (occurrence: None)
  Receive Date: 20120305
  Receipt Date: 20120217
  Transmission Date: 20120608
  Serious: Yes (Hospitalization)
  Sender: FDA-Public Use
  Company Number: TPA2012A00470

PATIENT
  Age: 70 Year
  Sex: Male

DRUGS (1)
  1. FEBURIC (FEBUXOSTAT) [Suspect]
     Indication: HYPERURICAEMIA
     Dosage: 10 MG (10 MG, 1 IN 1 D) PER ORAL
     Route: 048
     Dates: start: 20111001, end: 20111201

REACTIONS (1)
  - ALTERED STATE OF CONSCIOUSNESS [None]
